FAERS Safety Report 8368874 (Version 2)
Quarter: 2013Q1

REPORT INFORMATION
  Report Type: Spontaneous
  Country: US (occurrence: US)
  Receive Date: 20120131
  Receipt Date: 20130129
  Transmission Date: 20140127
  Serious: No
  Sender: FDA-Public Use
  Company Number: US-BIOGENIDEC-2012BI002905

PATIENT
  Age: 41 Year
  Sex: Female

DRUGS (3)
  1. TYSABRI [Suspect]
     Indication: MULTIPLE SCLEROSIS
     Route: 042
     Dates: start: 20111215
  2. VICODIN [Concomitant]
     Indication: FALL
  3. VICODIN [Concomitant]
     Indication: HEADACHE

REACTIONS (2)
  - Headache [Recovered/Resolved]
  - Nasopharyngitis [Recovered/Resolved]
